FAERS Safety Report 9539520 (Version 1)
Quarter: 2013Q3

REPORT INFORMATION
  Report Type: Spontaneous
  Country: US (occurrence: US)
  Receive Date: 20130920
  Receipt Date: 20130920
  Transmission Date: 20140515
  Serious: No
  Sender: FDA-Public Use
  Company Number: US-PURDUE-USA-2011-0079341

PATIENT
  Sex: Female

DRUGS (2)
  1. BUTRANS [Suspect]
     Indication: PRODUCT USED FOR UNKNOWN INDICATION
     Dosage: 20 MCG, Q1H
     Route: 062
  2. BUTRANS [Suspect]
     Dosage: 10 MCG, Q1H
     Route: 062
     Dates: start: 201109, end: 20111129

REACTIONS (2)
  - Application site rash [Recovered/Resolved]
  - Application site pain [Recovered/Resolved]
